FAERS Safety Report 4318111-8 (Version None)
Quarter: 2004Q1

REPORT INFORMATION
  Report Type: 
  Country: None (occurrence: None)
  Receive Date: 20040315
  Receipt Date: 20040301
  Transmission Date: 20041129
  Serious: Yes (Death)
  Sender: FDA-Public Use
  Company Number: US-JNJFOC-20031205073

PATIENT
  Age: 66 Year
  Sex: Female
  Weight: 58.9676 kg

DRUGS (4)
  1. DITROPAN XL [Suspect]
     Indication: URGE INCONTINENCE
     Dosage: ORAL
     Route: 048
     Dates: start: 20010101, end: 20031212
  2. LEVOXYL [Concomitant]
  3. LORAZEPAM [Concomitant]
  4. OLOFT (SERTRALINE HYDROCHLORIDE) [Concomitant]

REACTIONS (4)
  - LUNG NEOPLASM MALIGNANT [None]
  - MALIGNANT NEOPLASM PROGRESSION [None]
  - RENAL FAILURE [None]
  - RESPIRATORY FAILURE [None]
